FAERS Safety Report 13245982 (Version 1)
Quarter: 2017Q1

REPORT INFORMATION
  Report Type: Spontaneous
  Country: US (occurrence: US)
  Receive Date: 20170217
  Receipt Date: 20170217
  Transmission Date: 20170428
  Serious: Yes (Hospitalization, Other)
  Sender: FDA-Public Use
  Company Number: US-AMGEN-USASP2017023741

PATIENT
  Age: 49 Year
  Sex: Male

DRUGS (2)
  1. CORLANOR [Suspect]
     Active Substance: IVABRADINE HYDROCHLORIDE
     Indication: BLOOD PRESSURE ABNORMAL
  2. CORLANOR [Suspect]
     Active Substance: IVABRADINE HYDROCHLORIDE
     Indication: HEART RATE DECREASED
     Dosage: 2.5 MG, UNK
     Route: 065

REACTIONS (3)
  - Vomiting [Unknown]
  - Gastrointestinal haemorrhage [Unknown]
  - Off label use [Unknown]
